FAERS Safety Report 16990362 (Version 1)
Quarter: 2019Q4

REPORT INFORMATION
  Report Type: Spontaneous
  Country: US (occurrence: US)
  Receive Date: 20191103
  Receipt Date: 20191103
  Transmission Date: 20200122
  Serious: Yes (Hospitalization)
  Sender: FDA-Public Use
  Company Number: None

PATIENT
  Age: 80 Year
  Sex: Female
  Weight: 51.2 kg

DRUGS (5)
  1. METHOTREXATE TABLETS [Suspect]
     Active Substance: METHOTREXATE
     Indication: RHEUMATOID ARTHRITIS
     Dosage: ?          OTHER FREQUENCY:ONE WEEKLY;?
     Route: 048
  2. ABATACEPT [Concomitant]
     Active Substance: ABATACEPT
     Dates: start: 20160416, end: 20190930
  3. OMEPRAZOLE. [Concomitant]
     Active Substance: OMEPRAZOLE
     Dates: start: 20111212, end: 20191008
  4. NO DRUG NAME [Concomitant]
     Dates: start: 20160416, end: 20190928
  5. IBUPROFEN. [Suspect]
     Active Substance: IBUPROFEN
     Indication: ORAL PAIN
     Dosage: ?          OTHER FREQUENCY:EVERY 4 TO 6 HOURS;?
     Route: 048

REACTIONS (4)
  - Neutropenia [None]
  - Weight decreased [None]
  - Drug interaction [None]
  - Stomatitis [None]

NARRATIVE: CASE EVENT DATE: 20191008
